FAERS Safety Report 8535732-7 (Version None)
Quarter: 2012Q3

REPORT INFORMATION
  Report Type: 
  Country: None (occurrence: None)
  Receive Date: 20120725
  Receipt Date: 20120710
  Transmission Date: 20120928
  Serious: No
  Sender: FDA-Public Use
  Company Number: US-ROXANE LABORATORIES, INC.-2012-RO-01532RO

PATIENT
  Age: 75 Year
  Sex: Female

DRUGS (2)
  1. FLUTICASONE PROPIONATE [Suspect]
     Route: 045
     Dates: start: 20120501
  2. REFRESH LUBRICANT OPTHALMIC SOLUTION [Suspect]
     Indication: DRY EYE
     Route: 031
     Dates: start: 20120530

REACTIONS (1)
  - HEART RATE IRREGULAR [None]
